FAERS Safety Report 6984491-8 (Version None)
Quarter: 2010Q3

REPORT INFORMATION
  Report Type: 
  Country: None (occurrence: None)
  Receive Date: 20100913
  Receipt Date: 20100831
  Transmission Date: 20110219
  Serious: Yes (Hospitalization, Other)
  Sender: FDA-Public Use
  Company Number: 018078

PATIENT
  Sex: Male
  Weight: 20.3 kg

DRUGS (3)
  1. LACOSAMIDE [Suspect]
     Indication: PARTIAL SEIZURES
     Dosage: (5 ML BID ORAL)
     Route: 048
     Dates: start: 20100101
  2. LAMICTAL [Concomitant]
  3. TRILEPTAL [Concomitant]

REACTIONS (2)
  - DECREASED INTEREST [None]
  - MENTAL DISORDER [None]
